FAERS Safety Report 16729895 (Version 1)
Quarter: 2019Q3

REPORT INFORMATION
  Report Type: Spontaneous
  Country: JP (occurrence: JP)
  Receive Date: 20190822
  Receipt Date: 20190822
  Transmission Date: 20191005
  Serious: Yes (Hospitalization, Other)
  Sender: FDA-Public Use
  Company Number: JP-ACCORD-152416

PATIENT
  Age: 51 Year
  Sex: Female

DRUGS (3)
  1. ESOMEPRAZOLE/ESOMEPRAZOLE MAGNESIUM/ESOMEPRAZOLE SODIUM [Suspect]
     Active Substance: ESOMEPRAZOLE
     Indication: EPIGASTRIC DISCOMFORT
     Dates: start: 201212, end: 201603
  2. VONOPRAZAN [Suspect]
     Active Substance: VONOPRAZAN
     Indication: EPIGASTRIC DISCOMFORT
     Dates: start: 201603
  3. LANSOPRAZOLE. [Suspect]
     Active Substance: LANSOPRAZOLE
     Indication: EPIGASTRIC DISCOMFORT
     Dates: start: 200808, end: 201212

REACTIONS (3)
  - Gastric polyps [Recovered/Resolved]
  - Gastrointestinal neoplasm [Recovered/Resolved]
  - Dysplasia [Recovered/Resolved]

NARRATIVE: CASE EVENT DATE: 201605
